FAERS Safety Report 16426851 (Version 1)
Quarter: 2019Q2

REPORT INFORMATION
  Report Type: Spontaneous
  Country: US (occurrence: US)
  Receive Date: 20190612
  Receipt Date: 20190612
  Transmission Date: 20190711
  Serious: Yes (Hospitalization, Congenital Anomaly)
  Sender: FDA-Public Use
  Company Number: None

PATIENT
  Age: 69 Year
  Sex: Female

DRUGS (12)
  1. ENBREL [Suspect]
     Active Substance: ETANERCEPT
     Indication: RHEUMATOID ARTHRITIS
     Dosage: ?          OTHER FREQUENCY:WEEKLY;?
     Route: 058
  2. CYMBALTA [Concomitant]
     Active Substance: DULOXETINE HYDROCHLORIDE
  3. RESTASIS [Concomitant]
     Active Substance: CYCLOSPORINE
  4. LUNESTA [Concomitant]
     Active Substance: ESZOPICLONE
  5. ALIGN 4 MG [Concomitant]
  6. OCTAGAM IMMUNE GLOBULIN (HUMAN) [Concomitant]
     Active Substance: HUMAN IMMUNOGLOBULIN G
  7. MYRBETRIQ [Concomitant]
     Active Substance: MIRABEGRON
  8. NEURONTIN 800MG [Concomitant]
  9. OSPHENA [Concomitant]
     Active Substance: OSPEMIFENE
  10. BAYER LOW 81 MG ASPIRIN [Concomitant]
  11. CELEBREX [Concomitant]
     Active Substance: CELECOXIB
  12. MAG OXIDE 400MG [Concomitant]

REACTIONS (2)
  - Injection site pain [None]
  - Therapy cessation [None]

NARRATIVE: CASE EVENT DATE: 20190530
